FAERS Safety Report 5691081-6 (Version None)
Quarter: 2008Q2

REPORT INFORMATION
  Report Type: 
  Country: None (occurrence: None)
  Receive Date: 20080401
  Receipt Date: 20080321
  Transmission Date: 20081010
  Serious: Yes (Hospitalization, Other)
  Sender: FDA-Public Use
  Company Number: US-PFIZER INC-2008026923

PATIENT
  Sex: Female
  Weight: 74.8 kg

DRUGS (7)
  1. CHANTIX [Suspect]
     Indication: SMOKING CESSATION THERAPY
  2. XANAX [Concomitant]
     Indication: SLEEP DISORDER
  3. ACETYLSALICYLIC ACID SRT [Concomitant]
  4. PROZAC [Concomitant]
     Indication: DEPRESSION
  5. PRILOSEC [Concomitant]
     Indication: DYSPEPSIA
  6. LEVOTHYROXINE SODIUM [Concomitant]
     Indication: THYROID DISORDER
  7. LASIX [Concomitant]

REACTIONS (8)
  - ANGER [None]
  - ANORECTAL OPERATION [None]
  - BEREAVEMENT REACTION [None]
  - CEREBROVASCULAR ACCIDENT [None]
  - MEMORY IMPAIRMENT [None]
  - PROCEDURAL PAIN [None]
  - READING DISORDER [None]
  - SPEECH DISORDER [None]
